FAERS Safety Report 6912361-X (Version None)
Quarter: 2010Q3

REPORT INFORMATION
  Report Type: 
  Country: None (occurrence: None)
  Receive Date: 20100806
  Receipt Date: 20080421
  Transmission Date: 20110219
  Serious: No
  Sender: FDA-Public Use
  Company Number: US-PFIZER INC-2008035158

PATIENT
  Sex: Female
  Weight: 47.272 kg

DRUGS (9)
  1. DETROL LA [Suspect]
     Indication: POLLAKIURIA
     Dates: start: 20060101, end: 20060101
  2. ASACOL [Concomitant]
  3. PLAQUENIL [Concomitant]
  4. PREDNISONE [Concomitant]
  5. ENALAPRIL [Concomitant]
  6. FOSAMAX [Concomitant]
  7. HYDROCHLOROTHIAZIDE [Concomitant]
  8. FLONASE [Concomitant]
  9. ADVAIR DISKUS 100/50 [Concomitant]

REACTIONS (2)
  - DRY EYE [None]
  - DRY SKIN [None]
